FAERS Safety Report 11317004 (Version 1)
Quarter: 2015Q3

REPORT INFORMATION
  Report Type: Spontaneous
  Country: US (occurrence: None)
  Receive Date: 20150727
  Receipt Date: 20150727
  Transmission Date: 20151125
  Serious: Yes (Hospitalization)
  Sender: FDA-Public Use
  Company Number: None

PATIENT
  Age: 66 Year
  Sex: Male

DRUGS (7)
  1. PROMETHAZINE [Concomitant]
     Active Substance: PROMETHAZINE\PROMETHAZINE HYDROCHLORIDE
  2. COD LIVER OIL [Concomitant]
     Active Substance: COD LIVER OIL
  3. CARVEDILOL. [Concomitant]
     Active Substance: CARVEDILOL
  4. ZINC OXIDE. [Concomitant]
     Active Substance: ZINC OXIDE
  5. METOCLOPRAMIDE. [Concomitant]
     Active Substance: METOCLOPRAMIDE
  6. OXYCODONE [Concomitant]
     Active Substance: OXYCODONE
  7. HEPARIN [Suspect]
     Active Substance: HEPARIN SODIUM
     Indication: ANTICOAGULANT THERAPY
     Dosage: 1600 UNITS/HR CONTINUOUS IV
     Route: 042
     Dates: start: 20150517, end: 20150519

REACTIONS (8)
  - Activated partial thromboplastin time prolonged [None]
  - Haemorrhage intracranial [None]
  - Nervous system disorder [None]
  - Brain oedema [None]
  - Somnolence [None]
  - Hyporesponsive to stimuli [None]
  - Cerebrovascular accident [None]
  - Atrial fibrillation [None]

NARRATIVE: CASE EVENT DATE: 20150519
